FAERS Safety Report 10085717 (Version 3)
Quarter: 2014Q2

REPORT INFORMATION
  Report Type: Report from Study
  Country: DE (occurrence: DE)
  Receive Date: 20140418
  Receipt Date: 20140529
  Transmission Date: 20141212
  Serious: Yes (Hospitalization)
  Sender: FDA-Public Use
  Company Number: DE-SA-2014SA046237

PATIENT
  Age: 52 Year
  Sex: Female
  Weight: 81 kg

DRUGS (7)
  1. CABAZITAXEL [Suspect]
     Indication: BREAST CANCER
     Dosage: FORM:INFUSION
     Route: 042
     Dates: start: 20140212, end: 20140212
  2. CABAZITAXEL [Suspect]
     Indication: BREAST CANCER
     Route: 042
     Dates: start: 20140326, end: 20140326
  3. CABAZITAXEL [Suspect]
     Indication: BREAST CANCER
     Route: 042
     Dates: start: 20140423, end: 20140423
  4. NOVAMINSULFON [Concomitant]
     Dosage: 3X30TRO
     Route: 065
     Dates: start: 20140324, end: 20140422
  5. BUSCOPAN [Concomitant]
     Dosage: 3X1
     Route: 065
     Dates: start: 20140324, end: 20140407
  6. IBUPROFEN [Concomitant]
     Dosage: 1X1
     Route: 048
     Dates: start: 20140407, end: 20140420
  7. CIPROFLOXACIN [Concomitant]
     Dosage: 2X1 (250)
     Route: 048
     Dates: start: 20140320, end: 20140324

REACTIONS (1)
  - Hydronephrosis [Recovered/Resolved]
